FAERS Safety Report 5707655-X (Version None)
Quarter: 2008Q2

REPORT INFORMATION
  Report Type: 
  Country: None (occurrence: None)
  Receive Date: 20080415
  Receipt Date: 20080407
  Transmission Date: 20081010
  Serious: Yes (Other)
  Sender: FDA-Public Use
  Company Number: CHPA2008US06225

PATIENT
  Age: 53 Year
  Sex: Female
  Weight: 55.8 kg

DRUGS (1)
  1. THERAFLU FLU AND SORE THROAT [Suspect]
     Indication: INFLUENZA
     Dosage: 1 DF, ONCE/SINGLE, ORAL
     Route: 048
     Dates: start: 20080326, end: 20080326

REACTIONS (6)
  - AGEUSIA [None]
  - ANOSMIA [None]
  - BURNING SENSATION [None]
  - EPISTAXIS [None]
  - HYPERSENSITIVITY [None]
  - TONGUE DISORDER [None]
